FAERS Safety Report 23242340 (Version 2)
Quarter: 2023Q4

REPORT INFORMATION
  Report Type: Spontaneous
  Country: US (occurrence: US)
  Receive Date: 20231129
  Receipt Date: 20231208
  Transmission Date: 20240109
  Serious: Yes (Other)
  Sender: FDA-Public Use
  Company Number: US-LEX-000064

PATIENT
  Sex: Male
  Weight: 106.59 kg

DRUGS (3)
  1. INPEFA [Suspect]
     Active Substance: SOTAGLIFLOZIN
     Indication: Cardiomyopathy
     Route: 048
     Dates: start: 20231027, end: 20231106
  2. ENTRESTO [Concomitant]
     Active Substance: SACUBITRIL\VALSARTAN
     Indication: Cardiomyopathy
     Dates: start: 20230901
  3. ALDACTONE [Concomitant]
     Active Substance: SPIRONOLACTONE
     Indication: Cardiomyopathy
     Dates: start: 20231116

REACTIONS (2)
  - Renal disorder [Unknown]
  - Off label use [Unknown]
